FAERS Safety Report 21298675 (Version 1)
Quarter: 2022Q3

REPORT INFORMATION
  Report Type: Spontaneous
  Country: US (occurrence: None)
  Receive Date: 20220905
  Receipt Date: 20220905
  Transmission Date: 20221027
  Serious: No
  Sender: FDA-Public Use
  Company Number: None

PATIENT
  Age: 74 Year
  Sex: Male
  Weight: 135 kg

DRUGS (1)
  1. SULFUR HEXAFLUORIDE [Suspect]
     Active Substance: SULFUR HEXAFLUORIDE
     Dosage: IV?
     Route: 042
     Dates: start: 20220509, end: 20220509

REACTIONS (4)
  - Skin warm [None]
  - Erythema [None]
  - Adverse drug reaction [None]
  - Cardiac arrest [None]

NARRATIVE: CASE EVENT DATE: 20220617
